FAERS Safety Report 4510984-9 (Version None)
Quarter: 2004Q4

REPORT INFORMATION
  Report Type: 
  Country: None (occurrence: None)
  Receive Date: 20040928
  Receipt Date: 20040819
  Transmission Date: 20050328
  Serious: Yes (Hospitalization)
  Sender: FDA-Public Use
  Company Number: 04P-163-0271016-00

PATIENT
  Age: 76 Year
  Sex: Female
  Weight: 51.7101 kg

DRUGS (11)
  1. HUMIRA [Suspect]
     Indication: RHEUMATOID ARTHRITIS
     Dosage: 40 MG, 1 IN 2 WK, SUBCUTANEOUS
     Route: 058
     Dates: start: 20030501, end: 20040101
  2. TOPROL-XL [Concomitant]
  3. CLOPIDOGREL BISULFATE [Concomitant]
  4. ISOSORBIDE DINITRATE [Concomitant]
  5. ACETYLSALICYLIC ACID [Concomitant]
  6. PREDNISONE [Concomitant]
  7. MULTIVITAMIN [Concomitant]
  8. LANSOPRAZOLE [Concomitant]
  9. LISINOPRIL [Concomitant]
  10. ZOCOR [Concomitant]
  11. LEVOTHYROXINE SODIUM [Concomitant]

REACTIONS (4)
  - DEHYDRATION [None]
  - PNEUMONIA [None]
  - RASH [None]
  - VAGINAL INFECTION [None]
